FAERS Safety Report 9095040 (Version 2)
Quarter: 2013Q3

REPORT INFORMATION
  Report Type: Spontaneous
  Country: US (occurrence: US)
  Receive Date: 20130219
  Receipt Date: 20130924
  Transmission Date: 20140515
  Serious: No
  Sender: FDA-Public Use
  Company Number: US-009507513-1302USA008480

PATIENT
  Sex: Female

DRUGS (1)
  1. COPPERTONE SPORT PRO SERIES CLEAR CONTINUOUS SPRAY SPF-30 [Suspect]
     Indication: PRODUCT USED FOR UNKNOWN INDICATION
     Dosage: UNK, UNKNOWN
     Route: 061

REACTIONS (4)
  - Burning sensation [Unknown]
  - Skin exfoliation [Unknown]
  - Seborrhoea [Unknown]
  - Skin irritation [Unknown]
